FAERS Safety Report 24579332 (Version 1)
Quarter: 2024Q4

REPORT INFORMATION
  Report Type: Spontaneous
  Country: US (occurrence: US)
  Receive Date: 20241105
  Receipt Date: 20241105
  Transmission Date: 20250115
  Serious: No
  Sender: ABBVIE
  Company Number: US-ABBVIE-5982422

PATIENT
  Age: 6 Month
  Sex: Female
  Weight: 3 kg

DRUGS (2)
  1. HUMIRA [Suspect]
     Active Substance: ADALIMUMAB
     Indication: Maternal exposure timing unspecified
     Route: 064
     Dates: start: 202308, end: 202404
  2. HUMIRA [Suspect]
     Active Substance: ADALIMUMAB
     Route: 063
     Dates: start: 202404

REACTIONS (2)
  - Exposure via breast milk [Unknown]
  - Foetal exposure during pregnancy [Unknown]
